FAERS Safety Report 13253831 (Version 1)
Quarter: 2017Q1

REPORT INFORMATION
  Report Type: Report from Study
  Country: JP (occurrence: JP)
  Receive Date: 20170220
  Receipt Date: 20170220
  Transmission Date: 20170428
  Serious: Yes (Hospitalization, Congenital Anomaly, Other)
  Sender: FDA-Public Use
  Company Number: JP-ALEXION-A201402937

PATIENT

DRUGS (3)
  1. CALCIUM [Concomitant]
     Active Substance: CALCIUM
     Indication: BLOOD CALCIUM DECREASED
     Dosage: 100 MG/KG, QD
     Route: 042
  2. ENB-0040 [Suspect]
     Active Substance: ASFOTASE ALFA
     Indication: HYPOPHOSPHATASIA
     Dosage: 2 MG/KG, TIW
     Route: 058
     Dates: start: 20130319
  3. CALCIUM [Concomitant]
     Active Substance: CALCIUM
     Dosage: UNK
     Route: 048

REACTIONS (4)
  - Hypocalcaemia [Recovered/Resolved]
  - Seizure [Recovered/Resolved]
  - Tracheostomy [Not Recovered/Not Resolved]
  - Mixed deafness [Not Recovered/Not Resolved]

NARRATIVE: CASE EVENT DATE: 20130410
